FAERS Safety Report 7927899-6 (Version None)
Quarter: 2011Q4

REPORT INFORMATION
  Report Type: 
  Country: None (occurrence: None)
  Receive Date: 20111118
  Receipt Date: 20111110
  Transmission Date: 20120403
  Serious: Yes (Other)
  Sender: FDA-Public Use
  Company Number: US-JNJFOC-20111104852

PATIENT
  Sex: Male
  Weight: 81.65 kg

DRUGS (2)
  1. REMICADE [Suspect]
     Indication: CROHN'S DISEASE
     Route: 042
     Dates: start: 20090801
  2. REMICADE [Suspect]
     Route: 042
     Dates: start: 20090101

REACTIONS (5)
  - GLAUCOMA [None]
  - OPTIC NERVE INJURY [None]
  - CROHN'S DISEASE [None]
  - HAEMORRHAGE [None]
  - INFLUENZA LIKE ILLNESS [None]
